FAERS Safety Report 25511991 (Version 1)
Quarter: 2025Q3

REPORT INFORMATION
  Report Type: Spontaneous
  Country: EU (occurrence: EU)
  Receive Date: 20250703
  Receipt Date: 20250703
  Transmission Date: 20251020
  Serious: Yes (Disabling, Other)
  Sender: SANDOZ
  Company Number: None

PATIENT
  Age: 57 Year
  Weight: 88 kg

DRUGS (1)
  1. TOBRADEX [Suspect]
     Active Substance: DEXAMETHASONE\TOBRAMYCIN
     Indication: Product used for unknown indication
     Route: 065

REACTIONS (5)
  - Visual impairment [Not Recovered/Not Resolved]
  - Papilloedema [Unknown]
  - Facial discomfort [Not Recovered/Not Resolved]
  - Sinus congestion [Not Recovered/Not Resolved]
  - Swelling face [Not Recovered/Not Resolved]

NARRATIVE: CASE EVENT DATE: 20221208
